FAERS Safety Report 5202828-7 (Version None)
Quarter: 2006Q4

REPORT INFORMATION
  Report Type: 
  Country: None (occurrence: None)
  Receive Date: 20061018
  Receipt Date: 20060508
  Transmission Date: 20070319
  Serious: Yes (Hospitalization)
  Sender: FDA-Public Use
  Company Number: PHEH2006US06062

PATIENT
  Age: 46 Year
  Sex: Female

DRUGS (1)
  1. ZOMETA [Suspect]
     Indication: BREAST CANCER METASTATIC
     Dosage: 4 MG, ONCE/SINGLE, 15 MIN INFUSION, INFUSION
     Dates: start: 20060409, end: 20060409

REACTIONS (4)
  - CHILLS [None]
  - CONJUNCTIVITIS [None]
  - MYALGIA [None]
  - PYREXIA [None]
